FAERS Safety Report 16646396 (Version 9)
Quarter: 2020Q3

REPORT INFORMATION
  Report Type: Report from Study
  Country: US (occurrence: US)
  Receive Date: 20190730
  Receipt Date: 20200720
  Transmission Date: 20201102
  Serious: Yes (Hospitalization, Other)
  Sender: FDA-Public Use
  Company Number: US-GLAXOSMITHKLINE-US2019GSK137172

PATIENT
  Age: 22 Year
  Sex: Female
  Weight: 58.1 kg

DRUGS (15)
  1. MYCOPHENOLATE MOFETIL. [Suspect]
     Active Substance: MYCOPHENOLATE MOFETIL
     Indication: SYSTEMIC LUPUS ERYTHEMATOSUS
     Dosage: 3000MG/DAY
     Dates: start: 20171215
  2. LOSARTAN. [Concomitant]
     Active Substance: LOSARTAN
     Dosage: 75 MG/DAY
     Dates: start: 20180104
  3. FOLIC ACID. [Concomitant]
     Active Substance: FOLIC ACID
     Dosage: 1 MG/DAY
     Dates: start: 20190419
  4. HYDROXYCHLOROQUINE [Concomitant]
     Active Substance: HYDROXYCHLOROQUINE
     Dosage: ALTERNATE 200 AND 400 MG/DAY
     Dates: start: 20180104
  5. VIMPAT [Concomitant]
     Active Substance: LACOSAMIDE
     Dosage: 100MG/DAY
     Dates: start: 20171214
  6. LEUCOVORINE [Concomitant]
     Active Substance: LEUCOVORIN
     Indication: CENTRAL NERVOUS SYSTEM LYMPHOMA
     Dosage: 100 MG, PER CHEMO PROTOCOL
     Route: 042
     Dates: start: 20190707
  7. MAGNESIUM OXIDE. [Concomitant]
     Active Substance: MAGNESIUM OXIDE
     Dosage: 250 MG/DAY
     Dates: start: 20190506
  8. BELIMUMAB [Suspect]
     Active Substance: BELIMUMAB
     Indication: SYSTEMIC LUPUS ERYTHEMATOSUS
     Dosage: 200 MG/WEEK
     Dates: start: 20181128
  9. SUMATRIPTAN. [Concomitant]
     Active Substance: SUMATRIPTAN
     Dosage: 50 MG, AS NEEDED
     Dates: start: 20190419
  10. ATORVASTATIN [Concomitant]
     Active Substance: ATORVASTATIN
     Dosage: 20 MG/DAY
     Dates: start: 20171221
  11. AMITRIPTYLINE [Concomitant]
     Active Substance: AMITRIPTYLINE
     Dosage: 10?20MG/DAY
     Dates: start: 20190311
  12. NAPROXEN. [Concomitant]
     Active Substance: NAPROXEN
     Dosage: 500 MG AS NEEDED
     Dates: start: 20190419
  13. PROCHLORPERAZINE. [Concomitant]
     Active Substance: PROCHLORPERAZINE
     Dosage: 20 MG AS NEEDED
     Dates: start: 20190419
  14. SULFAMETHOXAZOLE?TRIMETHOPRIM [Concomitant]
     Active Substance: SULFAMETHOXAZOLE\TRIMETHOPRIM
     Dosage: 800?160 MG/DAY(3DAYS/WEEK)
     Dates: start: 20171218
  15. SYNTHROID [Concomitant]
     Active Substance: LEVOTHYROXINE SODIUM
     Dosage: 75 MCG/DAY
     Dates: start: 2015

REACTIONS (1)
  - Diffuse large B-cell lymphoma [Not Recovered/Not Resolved]

NARRATIVE: CASE EVENT DATE: 20190625
